FAERS Safety Report 19902850 (Version 1)
Quarter: 2021Q4

REPORT INFORMATION
  Report Type: Report from Study
  Country: AR (occurrence: AR)
  Receive Date: 20211001
  Receipt Date: 20211001
  Transmission Date: 20220303
  Serious: No
  Sender: FDA-Public Use
  Company Number: AR-UCBSA-2021046556

PATIENT
  Age: 70 Year
  Sex: Female

DRUGS (2)
  1. ROTIGOTINE [Suspect]
     Active Substance: ROTIGOTINE
     Indication: Parkinson^s disease
     Dosage: 16 MILLIGRAM, ONCE DAILY (QD)
     Route: 062
     Dates: start: 20210919, end: 20210920
  2. ROTIGOTINE [Suspect]
     Active Substance: ROTIGOTINE
     Dosage: 16 MILLIGRAM, ONCE DAILY (QD)
     Route: 062
     Dates: start: 20210921

REACTIONS (4)
  - Device adhesion issue [Unknown]
  - Hyperhidrosis [Unknown]
  - Wrong technique in product usage process [Unknown]
  - Product quality issue [Unknown]

NARRATIVE: CASE EVENT DATE: 20210919
